FAERS Safety Report 21751688 (Version 1)
Quarter: 2022Q4

REPORT INFORMATION
  Report Type: Spontaneous
  Country: CA (occurrence: CA)
  Receive Date: 20221220
  Receipt Date: 20221220
  Transmission Date: 20230113
  Serious: Yes (Hospitalization, Other)
  Sender: FDA-Public Use
  Company Number: CA-JNJFOC-20221229522

PATIENT
  Age: 22 Day
  Sex: Male
  Weight: 4 kg

DRUGS (1)
  1. ACETAMINOPHEN [Suspect]
     Active Substance: ACETAMINOPHEN
     Indication: Circumcision
     Route: 065

REACTIONS (5)
  - Dose calculation error [Recovered/Resolved]
  - Product label confusion [Recovered/Resolved]
  - Analgesic drug level above therapeutic [Recovered/Resolved]
  - Toxicity to various agents [Recovered/Resolved]
  - Accidental overdose [Recovered/Resolved]
